FAERS Safety Report 9643940 (Version 1)
Quarter: 2013Q4

REPORT INFORMATION
  Report Type: Spontaneous
  Country: IT (occurrence: IT)
  Receive Date: 20131024
  Receipt Date: 20131024
  Transmission Date: 20140711
  Serious: Yes (Hospitalization)
  Sender: FDA-Public Use
  Company Number: IT-UCBSA-100763

PATIENT
  Age: 77 Year
  Sex: Female

DRUGS (4)
  1. KEPPRA [Suspect]
     Indication: EPILEPSY
     Route: 048
     Dates: start: 2010
  2. RIVOTRIL [Interacting]
     Indication: EPILEPSY
     Dosage: 2.5 MG/ML ORAL DROPS SOLUTION 10 ML BOTTLE; DOSE: 10 DROPS DAILY
     Route: 048
     Dates: start: 20131001, end: 20131003
  3. GARDENALE [Interacting]
     Indication: EPILEPSY
     Dosage: 100 MG 20 TABLETS
     Route: 048
     Dates: start: 2010
  4. CARDIOASPIRIN [Concomitant]
     Dosage: DOSE: 100 MG
     Route: 048

REACTIONS (3)
  - Somnolence [Unknown]
  - Sensorimotor disorder [Unknown]
  - Drug interaction [Unknown]
